FAERS Safety Report 5443035-2 (Version None)
Quarter: 2007Q3

REPORT INFORMATION
  Report Type: 
  Country: None (occurrence: None)
  Receive Date: 20070905
  Receipt Date: 20070831
  Transmission Date: 20080115
  Serious: Yes (Other)
  Sender: FDA-Public Use
  Company Number: GBWYE251103SEP07

PATIENT
  Age: 52 Year
  Sex: Female
  Weight: 70 kg

DRUGS (2)
  1. ANADIN IBUPROFEN [Suspect]
     Indication: MUSCLE STRAIN
     Dosage: 400MG, FREQUENCY UNKNOWN
     Route: 048
  2. ANADIN IBUPROFEN [Suspect]
     Indication: JOINT STIFFNESS

REACTIONS (2)
  - CONDITION AGGRAVATED [None]
  - LICHEN PLANUS [None]
